FAERS Safety Report 5777931-3 (Version None)
Quarter: 2008Q2

REPORT INFORMATION
  Report Type: 
  Country: None (occurrence: None)
  Receive Date: 20080617
  Receipt Date: 20080617
  Transmission Date: 20081010
  Serious: Yes (Hospitalization)
  Sender: FDA-Public Use
  Company Number: None

PATIENT
  Sex: Female
  Weight: 42.3 kg

DRUGS (3)
  1. ETOPOSIDE [Suspect]
     Dosage: 650 MG
  2. IFOSFAMIDE [Suspect]
     Dosage: 11.7 G
  3. MESNA [Suspect]
     Dosage: 7500 MG

REACTIONS (15)
  - BLOOD CULTURE POSITIVE [None]
  - BRADYCARDIA [None]
  - CANDIDIASIS [None]
  - CULTURE THROAT POSITIVE [None]
  - HYPOTENSION [None]
  - HYPOXIA [None]
  - LIVER FUNCTION TEST ABNORMAL [None]
  - MUCOSAL INFLAMMATION [None]
  - NEUTROPENIA [None]
  - OLIGURIA [None]
  - ORAL INTAKE REDUCED [None]
  - PAIN [None]
  - PYREXIA [None]
  - RENAL IMPAIRMENT [None]
  - RESPIRATORY DISORDER [None]
